FAERS Safety Report 25416577 (Version 1)
Quarter: 2025Q2

REPORT INFORMATION
  Report Type: Spontaneous
  Country: US (occurrence: US)
  Receive Date: 20250610
  Receipt Date: 20250610
  Transmission Date: 20250716
  Serious: No
  Sender: EMD SERONO INC
  Company Number: US-Merck Healthcare KGaA-2025028137

PATIENT
  Age: 37 Year
  Sex: Female

DRUGS (2)
  1. MAVENCLAD [Suspect]
     Active Substance: CLADRIBINE
     Indication: Multiple sclerosis
     Dosage: YEAR ONE FIRST MONTH THERAPY
     Dates: start: 20241205
  2. MAVENCLAD [Suspect]
     Active Substance: CLADRIBINE
     Dosage: YEAR ONE SECOND MONTH THERAPY
     Dates: start: 202501

REACTIONS (1)
  - Headache [Recovered/Resolved]

NARRATIVE: CASE EVENT DATE: 20250101
